FAERS Safety Report 14979049 (Version 1)
Quarter: 2018Q2

REPORT INFORMATION
  Report Type: Spontaneous
  Country: ZA (occurrence: ZA)
  Receive Date: 20180606
  Receipt Date: 20180606
  Transmission Date: 20180711
  Serious: Yes (Other)
  Sender: FDA-Public Use
  Company Number: ZA-009507513-1805ZAF014918

PATIENT
  Age: 60 Year
  Sex: Male

DRUGS (1)
  1. BRIDION [Suspect]
     Active Substance: SUGAMMADEX
     Dosage: 1 VIAL

REACTIONS (2)
  - Hypoxia [Unknown]
  - Endotracheal intubation complication [Unknown]
